FAERS Safety Report 25178278 (Version 1)
Quarter: 2025Q2

REPORT INFORMATION
  Report Type: Spontaneous
  Country: FR (occurrence: FR)
  Receive Date: 20250409
  Receipt Date: 20250409
  Transmission Date: 20250716
  Serious: Yes (Death)
  Sender: AMERICAN REGENT
  Company Number: FR-AMERICAN REGENT INC-2025001464

PATIENT
  Age: 86 Year
  Sex: Female
  Weight: 35 kg

DRUGS (1)
  1. VENOFER [Suspect]
     Active Substance: IRON SUCROSE
     Indication: Anaemia
     Route: 042
     Dates: start: 20241026, end: 20241028

REACTIONS (1)
  - Vessel puncture site inflammation [Fatal]

NARRATIVE: CASE EVENT DATE: 20241026
